FAERS Safety Report 4635508-7 (Version None)
Quarter: 2005Q2

REPORT INFORMATION
  Report Type: 
  Country: None (occurrence: None)
  Receive Date: 20050413
  Receipt Date: 20050404
  Transmission Date: 20051028
  Serious: Yes (Life-Threatening, Hospitalization, Other)
  Sender: FDA-Public Use
  Company Number: 2005041802

PATIENT
  Age: 57 Year
  Sex: Female

DRUGS (1)
  1. CELEBRA (CELECOXIB) [Suspect]
     Indication: POLYMYALGIA RHEUMATICA
     Dosage: 400 MG (200 MG, 2 IN 1 D), ORAL
     Route: 048
     Dates: start: 20020401, end: 20041220

REACTIONS (8)
  - ADRENAL CORTICAL INSUFFICIENCY [None]
  - AMNESIA [None]
  - BLOOD POTASSIUM DECREASED [None]
  - CARDIAC ARREST [None]
  - COMA [None]
  - FALL [None]
  - MYOCARDIAL INFARCTION [None]
  - VENTRICULAR FIBRILLATION [None]
